FAERS Safety Report 9928565 (Version 2)
Quarter: 2014Q1

REPORT INFORMATION
  Report Type: Spontaneous
  Country: JP (occurrence: None)
  Receive Date: 20140225
  Receipt Date: 20140324
  Transmission Date: 20141002
  Serious: Yes (Hospitalization)
  Sender: FDA-Public Use
  Company Number: SP07526

PATIENT
  Age: 73 Year
  Sex: Male

DRUGS (4)
  1. MOVIPREP [Suspect]
     Indication: BOWEL PREPARATION
     Route: 048
     Dates: start: 201311, end: 201311
  2. ARICEPT [Concomitant]
  3. CONIEL [Concomitant]
  4. FERO-GRADUMET [Concomitant]

REACTIONS (3)
  - Intestinal obstruction [None]
  - Gastrointestinal sounds abnormal [None]
  - Flatulence [None]
